FAERS Safety Report 8074160-8 (Version None)
Quarter: 2012Q1

REPORT INFORMATION
  Report Type: 
  Country: None (occurrence: None)
  Receive Date: 20120126
  Receipt Date: 20120124
  Transmission Date: 20120608
  Serious: No
  Sender: FDA-Public Use
  Company Number: US-BAYER-2012-008284

PATIENT
  Sex: Male

DRUGS (1)
  1. AVELOX [Suspect]
     Indication: SUBCUTANEOUS ABSCESS
     Dosage: 400 MG, QD
     Route: 048

REACTIONS (1)
  - DERMATITIS ALLERGIC [None]
